FAERS Safety Report 15463588 (Version 9)
Quarter: 2024Q2

REPORT INFORMATION
  Report Type: Report from Study
  Country: BR (occurrence: BR)
  Receive Date: 20181004
  Receipt Date: 20240425
  Transmission Date: 20240715
  Serious: Yes (Hospitalization, Other)
  Sender: FDA-Public Use
  Company Number: BR-MERCK KGAA-E2B_90060297

PATIENT
  Age: 54 Year
  Sex: Female

DRUGS (9)
  1. REBIF [Suspect]
     Active Substance: INTERFERON BETA-1A
     Indication: Multiple sclerosis
     Dosage: REBIF PREFILLED SYRINGE.
     Route: 058
     Dates: start: 20071025, end: 20190731
  2. REBIF [Suspect]
     Active Substance: INTERFERON BETA-1A
  3. BACLOFEN [Concomitant]
     Active Substance: BACLOFEN
     Indication: Paraesthesia
  4. BACLOFEN [Concomitant]
     Active Substance: BACLOFEN
     Indication: Musculoskeletal stiffness
  5. CARBAMAZEPINE [Concomitant]
     Active Substance: CARBAMAZEPINE
     Indication: Musculoskeletal stiffness
     Dosage: EVERY DAY
  6. ACETAMINOPHEN [Concomitant]
     Active Substance: ACETAMINOPHEN
     Indication: Pyrexia
  7. ACETAMINOPHEN [Concomitant]
     Active Substance: ACETAMINOPHEN
     Indication: Pain
  8. SULPIRIDE [Concomitant]
     Active Substance: SULPIRIDE
     Indication: Insomnia
     Dosage: EVERY DAY
  9. NORTRIPTYLINE [Concomitant]
     Active Substance: NORTRIPTYLINE
     Indication: Muscle contracture

REACTIONS (5)
  - Breast mass [Not Recovered/Not Resolved]
  - Mass [Unknown]
  - Cholelithiasis [Recovered/Resolved]
  - Liver function test abnormal [Not Recovered/Not Resolved]
  - Hypertension [Recovered/Resolved]

NARRATIVE: CASE EVENT DATE: 20180613
